FAERS Safety Report 21614092 (Version 2)
Quarter: 2022Q4

REPORT INFORMATION
  Report Type: Report from Study
  Country: PR (occurrence: PR)
  Receive Date: 20221118
  Receipt Date: 20221129
  Transmission Date: 20230112
  Serious: No
  Sender: FDA-Public Use
  Company Number: PR-ABBVIE-21K-131-4084965-00

PATIENT
  Age: 60 Year
  Sex: Female
  Weight: 68.038 kg

DRUGS (1)
  1. VENCLEXTA [Suspect]
     Active Substance: VENETOCLAX
     Indication: Chronic lymphocytic leukaemia
     Route: 048
     Dates: start: 20181017

REACTIONS (2)
  - Blood uric acid increased [Unknown]
  - Diarrhoea [Unknown]
